FAERS Safety Report 10736303 (Version 2)
Quarter: 2015Q1

REPORT INFORMATION
  Report Type: Spontaneous
  Country: CO (occurrence: None)
  Receive Date: 20150122
  Receipt Date: 20150128
  Transmission Date: 20150721
  Serious: Yes (Death, Other)
  Sender: FDA-Public Use
  Company Number: CO2015GSK005773

PATIENT
  Age: 52 Year
  Sex: Male
  Weight: 48 kg

DRUGS (5)
  1. CELSENTRI [Suspect]
     Active Substance: MARAVIROC
     Indication: HIV INFECTION
     Route: 048
  2. RALTEGRAVIR(RALTEGRAVIR) [Concomitant]
  3. TRUVADA(EMTRICITABINE + TENOFOVIR DISOPROXIL FUMARATE) [Concomitant]
  4. RITONAVIR (RITONAVIR) [Concomitant]
     Active Substance: RITONAVIR
  5. DARUNAVIR(DARUNAVIR) [Concomitant]

REACTIONS (4)
  - Weight decreased [None]
  - Plasma cell myeloma [None]
  - Sepsis [None]
  - Malabsorption [None]
